FAERS Safety Report 14519520 (Version 1)
Quarter: 2018Q1

REPORT INFORMATION
  Report Type: Spontaneous
  Country: US (occurrence: US)
  Receive Date: 20180209
  Receipt Date: 20180209
  Transmission Date: 20180509
  Serious: No
  Sender: FDA-Public Use
  Company Number: None

PATIENT
  Age: 65 Year
  Sex: Female
  Weight: 66.6 kg

DRUGS (1)
  1. MIRALAX [Suspect]
     Active Substance: POLYETHYLENE GLYCOL 3350

REACTIONS (7)
  - Nausea [None]
  - Diarrhoea [None]
  - Abnormal faeces [None]
  - Malaise [None]
  - Toxicity to various agents [None]
  - Constipation [None]
  - Infrequent bowel movements [None]

NARRATIVE: CASE EVENT DATE: 20170818
